FAERS Safety Report 8468152-4 (Version None)
Quarter: 2012Q2

REPORT INFORMATION
  Report Type: 
  Country: None (occurrence: None)
  Receive Date: 20120626
  Receipt Date: 20120622
  Transmission Date: 20120825
  Serious: Yes (Hospitalization, Disabling, Other)
  Sender: FDA-Public Use
  Company Number: US-MERCK-1109USA02803

PATIENT
  Age: 61 Year
  Sex: Female
  Weight: 75 kg

DRUGS (7)
  1. FOSAMAX [Suspect]
     Route: 048
     Dates: start: 20000101, end: 20070301
  2. FOSAMAX [Suspect]
     Route: 048
     Dates: start: 20000101, end: 20070301
  3. FOSAMAX [Suspect]
     Indication: OSTEOPOROSIS
     Route: 048
     Dates: start: 19970101, end: 20001101
  4. BONIVA [Suspect]
     Indication: OSTEOPENIA
     Route: 048
     Dates: start: 20070101, end: 20090401
  5. BONIVA [Suspect]
     Indication: OSTEOPOROSIS
     Route: 048
     Dates: start: 20070101, end: 20090401
  6. FOSAMAX [Suspect]
     Indication: OSTEOPENIA
     Route: 048
     Dates: start: 19970101, end: 20001101
  7. SYNTHROID [Concomitant]
     Indication: HYPOTHYROIDISM
     Route: 065
     Dates: start: 19900101

REACTIONS (20)
  - VARICOSE VEIN [None]
  - DIVERTICULUM [None]
  - BONE DENSITY DECREASED [None]
  - HERPES ZOSTER [None]
  - PAIN IN EXTREMITY [None]
  - GASTRIC ULCER [None]
  - OSTEOARTHRITIS [None]
  - BURSITIS [None]
  - CLOSTRIDIAL INFECTION [None]
  - IRRITABLE BOWEL SYNDROME [None]
  - FEMUR FRACTURE [None]
  - BARRETT'S OESOPHAGUS [None]
  - FACIAL BONES FRACTURE [None]
  - GOITRE [None]
  - HAEMORRHOIDS [None]
  - CYST [None]
  - APPENDIX DISORDER [None]
  - WEIGHT DECREASED [None]
  - SLEEP APNOEA SYNDROME [None]
  - DIARRHOEA [None]
